FAERS Safety Report 4511210-7 (Version None)
Quarter: 2004Q4

REPORT INFORMATION
  Report Type: 
  Country: None (occurrence: None)
  Receive Date: 20041122
  Receipt Date: 20041122
  Transmission Date: 20050328
  Serious: Yes (Life-Threatening)
  Sender: FDA-Public Use
  Company Number: None

PATIENT
  Age: 8 Year
  Sex: Male
  Weight: 27 kg

DRUGS (3)
  1. RASBURICASE [Suspect]
     Indication: T-CELL TYPE ACUTE LEUKAEMIA
     Dosage: 5.4 MG   DAILY    INTRAVENOU
     Route: 042
     Dates: start: 20041119, end: 20041119
  2. CIMETIDINE [Suspect]
     Indication: PROPHYLAXIS
     Dosage: 270 MG   ONCE  ORAL
     Route: 048
     Dates: start: 20041119, end: 20041119
  3. SODIUM BICARBONATE [Concomitant]

REACTIONS (1)
  - OXYGEN SATURATION DECREASED [None]
